FAERS Safety Report 7393867-9 (Version None)
Quarter: 2011Q2

REPORT INFORMATION
  Report Type: 
  Country: None (occurrence: None)
  Receive Date: 20110405
  Receipt Date: 20110323
  Transmission Date: 20111010
  Serious: Yes (Death)
  Sender: FDA-Public Use
  Company Number: JP-SANOFI-AVENTIS-2011SA018176

PATIENT
  Age: 76 Year
  Sex: Female

DRUGS (2)
  1. ELPLAT [Suspect]
     Indication: RECTAL CANCER
     Route: 042
     Dates: start: 20110224, end: 20110224
  2. XELODA [Suspect]
     Indication: RECTAL CANCER
     Route: 048
     Dates: start: 20110224, end: 20110226

REACTIONS (1)
  - ILEUS [None]
